FAERS Safety Report 6904488-3 (Version None)
Quarter: 2010Q3

REPORT INFORMATION
  Report Type: 
  Country: None (occurrence: None)
  Receive Date: 20100804
  Receipt Date: 20090529
  Transmission Date: 20110219
  Serious: No
  Sender: FDA-Public Use
  Company Number: US-PFIZER INC-2009220805

PATIENT
  Sex: Male
  Weight: 86.168 kg

DRUGS (3)
  1. LYRICA [Suspect]
     Indication: NERVE INJURY
     Dosage: 75 MG, 2X/DAY
     Route: 048
     Dates: start: 20070101
  2. WELLBUTRIN [Concomitant]
     Dosage: UNK
  3. PROZAC [Concomitant]
     Dosage: UNK

REACTIONS (5)
  - BALANCE DISORDER [None]
  - DISTURBANCE IN ATTENTION [None]
  - DIZZINESS [None]
  - HYPERTENSION [None]
  - WEIGHT INCREASED [None]
